FAERS Safety Report 6918429-6 (Version None)
Quarter: 2010Q3

REPORT INFORMATION
  Report Type: 
  Country: None (occurrence: None)
  Receive Date: 20100811
  Receipt Date: 20100730
  Transmission Date: 20110219
  Serious: No
  Sender: FDA-Public Use
  Company Number: US-BIOGENIDEC-2010BI026055

PATIENT
  Age: 39 Year
  Sex: Female

DRUGS (2)
  1. AVONEX [Suspect]
     Indication: MULTIPLE SCLEROSIS
     Route: 030
     Dates: start: 20100422, end: 20100501
  2. AVONEX [Suspect]
     Route: 030
     Dates: start: 20100729

REACTIONS (8)
  - DEHYDRATION [None]
  - DIZZINESS [None]
  - DRY MOUTH [None]
  - HYPERTENSION [None]
  - INFLUENZA LIKE ILLNESS [None]
  - INJECTION SITE PAIN [None]
  - PAIN IN EXTREMITY [None]
  - POLLAKIURIA [None]
